FAERS Safety Report 9759646 (Version 1)
Quarter: 2013Q4

REPORT INFORMATION
  Report Type: Spontaneous
  Country: US (occurrence: US)
  Receive Date: 20131216
  Receipt Date: 20131216
  Transmission Date: 20140711
  Serious: No
  Sender: FDA-Public Use
  Company Number: US-GILEAD-2010-0028499

PATIENT
  Age: 77 Year
  Sex: Female

DRUGS (19)
  1. LETAIRIS [Suspect]
     Indication: PULMONARY ARTERIAL HYPERTENSION
     Route: 048
     Dates: start: 20100218, end: 20100407
  2. VICODIN [Concomitant]
  3. SYNTHROID [Concomitant]
  4. NORVASC [Concomitant]
  5. PLAQUENIL [Concomitant]
  6. ARICEPT [Concomitant]
  7. TRANDATE [Concomitant]
  8. PREDNISONE [Concomitant]
  9. ACTONEL [Concomitant]
  10. FERROUS SULFATE [Concomitant]
  11. SANCTURA [Concomitant]
  12. NEURONTIN [Concomitant]
  13. SALSALATE [Concomitant]
  14. COQ [Concomitant]
  15. GINKOBA [Concomitant]
  16. PILOCARPINE [Concomitant]
  17. ASA [Concomitant]
  18. VITAMIN C [Concomitant]
  19. VITAMIN E [Concomitant]

REACTIONS (2)
  - Oedema peripheral [Recovering/Resolving]
  - Rash papular [Recovering/Resolving]
